FAERS Safety Report 15281508 (Version 1)
Quarter: 2018Q3

REPORT INFORMATION
  Report Type: Report from Study
  Country: DE (occurrence: DE)
  Receive Date: 20180815
  Receipt Date: 20180815
  Transmission Date: 20181010
  Serious: Yes (Death, Hospitalization)
  Sender: FDA-Public Use
  Company Number: DE-TEVA-2018-DE-939822

PATIENT
  Sex: Male
  Weight: 73 kg

DRUGS (22)
  1. FOLINIC ACID [Suspect]
     Active Substance: LEUCOVORIN
     Route: 042
     Dates: start: 20151125
  2. IRINOTECAN [Suspect]
     Active Substance: IRINOTECAN
     Route: 042
     Dates: start: 20150108, end: 20150115
  3. 5?FLUOROURACIL [Suspect]
     Active Substance: FLUOROURACIL
     Route: 041
     Dates: start: 20151125
  4. OXALIPLATIN. [Suspect]
     Active Substance: OXALIPLATIN
     Indication: COLORECTAL CANCER
     Route: 042
     Dates: start: 20150324, end: 20150608
  5. AVASTIN [Suspect]
     Active Substance: BEVACIZUMAB
     Route: 042
     Dates: start: 20160415
  6. CITALOPRAM [Concomitant]
     Active Substance: CITALOPRAM HYDROBROMIDE
     Indication: SLEEP DISORDER
     Dosage: 10 MILLIGRAM DAILY;
     Route: 048
     Dates: start: 20150623
  7. TAMSUBLOCK [Concomitant]
     Active Substance: TAMSULOSIN HYDROCHLORIDE
     Indication: BENIGN PROSTATIC HYPERPLASIA
     Dosage: .4 MILLIGRAM DAILY;
     Route: 048
     Dates: start: 20141111
  8. IRINOTECAN [Suspect]
     Active Substance: IRINOTECAN
     Route: 042
     Dates: start: 20150924, end: 20151029
  9. AVASTIN [Suspect]
     Active Substance: BEVACIZUMAB
     Route: 042
     Dates: start: 20160317
  10. AVASTIN [Suspect]
     Active Substance: BEVACIZUMAB
     Route: 042
     Dates: start: 20141127, end: 20151022
  11. ASS LIGHT 100 [Concomitant]
     Indication: HYPERTENSION
  12. BISOPROLOL [Concomitant]
     Active Substance: BISOPROLOL
     Indication: HYPERTENSION
     Route: 048
     Dates: start: 20151022
  13. AVASTIN [Suspect]
     Active Substance: BEVACIZUMAB
     Indication: COLORECTAL CANCER METASTATIC
     Route: 042
     Dates: start: 20141127, end: 20151022
  14. ASS LIGHT 100 [Concomitant]
     Indication: CEREBROVASCULAR DISORDER
     Dosage: 100 MILLIGRAM DAILY;
     Route: 048
  15. BISOPROLOL [Concomitant]
     Active Substance: BISOPROLOL
     Route: 048
  16. IRINOTECAN [Suspect]
     Active Substance: IRINOTECAN
     Route: 042
     Dates: start: 20151125
  17. L?THYROXIN [Concomitant]
     Active Substance: LEVOTHYROXINE SODIUM
     Indication: HYPOTHYROIDISM
     Dosage: 25 MICROGRAM DAILY;
     Route: 048
  18. 5?FLUOROURACIL [Suspect]
     Active Substance: FLUOROURACIL
     Indication: COLORECTAL CANCER
     Route: 042
     Dates: start: 20141113, end: 20150608
  19. AVASTIN [Suspect]
     Active Substance: BEVACIZUMAB
     Route: 042
     Dates: start: 20151214
  20. MONO?EMBOLEX [Concomitant]
     Active Substance: CERTOPARIN SODIUM
     Indication: DEEP VEIN THROMBOSIS
     Dosage: 16000 IU (INTERNATIONAL UNIT) DAILY;
     Route: 058
     Dates: start: 20141104
  21. FOLINIC ACID [Suspect]
     Active Substance: LEUCOVORIN
     Indication: COLORECTAL CANCER
     Route: 042
     Dates: start: 20141113, end: 20150608
  22. L?THYROXIN [Concomitant]
     Active Substance: LEVOTHYROXINE SODIUM
     Route: 048

REACTIONS (33)
  - Haemoglobin decreased [Recovered/Resolved]
  - Hypertension [Recovered/Resolved]
  - Syncope [Recovered/Resolved]
  - Atrial flutter [Recovered/Resolved]
  - Diarrhoea [Recovered/Resolved]
  - Diarrhoea [Recovered/Resolved]
  - Diarrhoea [Recovered/Resolved]
  - General physical health deterioration [Recovered/Resolved]
  - Cholestasis [Recovered/Resolved]
  - Circulatory collapse [Recovered/Resolved]
  - Abdominal pain [Recovered/Resolved]
  - Fatigue [Recovered/Resolved]
  - Chills [Recovered/Resolved]
  - Tachycardia [Recovered/Resolved]
  - Anaemia of malignant disease [Recovered/Resolved]
  - Polyneuropathy [Recovered/Resolved]
  - Proteinuria [Recovered/Resolved]
  - Fatigue [Recovered/Resolved]
  - Cachexia [Recovered/Resolved]
  - Systemic inflammatory response syndrome [Recovered/Resolved]
  - Diarrhoea [Recovered/Resolved]
  - Polyneuropathy [Recovered/Resolved]
  - Metastases to liver [Recovered/Resolved]
  - Dehydration [Recovered/Resolved]
  - Klebsiella bacteraemia [Recovered/Resolved]
  - Dizziness [Recovered/Resolved]
  - Diarrhoea [Recovered/Resolved]
  - Abdominal pain lower [Recovered/Resolved]
  - Tachycardia [Recovered/Resolved]
  - Fatigue [Recovered/Resolved]
  - Pain [Recovered/Resolved]
  - Ascites [Recovered/Resolved]
  - Salivary hypersecretion [Recovered/Resolved]

NARRATIVE: CASE EVENT DATE: 20141113
